FAERS Safety Report 5623004-X (Version None)
Quarter: 2008Q1

REPORT INFORMATION
  Report Type: 
  Country: None (occurrence: None)
  Receive Date: 20080212
  Receipt Date: 20080201
  Transmission Date: 20080703
  Serious: Yes (Other)
  Sender: FDA-Public Use
  Company Number: US-ASTRAZENECA-2007UW02162

PATIENT
  Age: 51 Year
  Sex: Female
  Weight: 113.6 kg

DRUGS (7)
  1. SEROQUEL [Suspect]
     Indication: BIPOLAR DISORDER
     Dosage: 25 MG - 350 MG
     Route: 048
     Dates: start: 20010201
  2. SEROQUEL [Suspect]
     Indication: INSOMNIA
     Dosage: 25 MG - 350 MG
     Route: 048
     Dates: start: 20010201
  3. RISPERDAL [Concomitant]
     Dates: start: 19970101, end: 20020201
  4. STELAZINE [Concomitant]
     Dates: end: 19970101
  5. LITHOBID [Concomitant]
     Dates: start: 19970101, end: 19970101
  6. LITHOBID [Concomitant]
     Dosage: 900 MG- 1200 MG
     Dates: start: 20030201, end: 20040301
  7. LAMICTAL [Concomitant]
     Dates: start: 20030301, end: 20040301

REACTIONS (12)
  - ANAEMIA [None]
  - ANOREXIA [None]
  - BUNION OPERATION [None]
  - CATARACT [None]
  - DIABETES MELLITUS [None]
  - GLAUCOMA [None]
  - HEPATITIS C [None]
  - HYPERPROLACTINAEMIA [None]
  - HYPOTHYROIDISM [None]
  - OVERDOSE [None]
  - SUICIDE ATTEMPT [None]
  - WEIGHT INCREASED [None]
